FAERS Safety Report 17907903 (Version 1)
Quarter: 2020Q2

REPORT INFORMATION
  Report Type: Spontaneous
  Country: US (occurrence: US)
  Receive Date: 20200617
  Receipt Date: 20200617
  Transmission Date: 20200714
  Serious: Yes (Death)
  Sender: FDA-Public Use
  Company Number: US-CELGENEUS-USA-20200603527

PATIENT
  Age: 71 Year
  Sex: Male
  Weight: 90.8 kg

DRUGS (2)
  1. JAKAFI [Concomitant]
     Active Substance: RUXOLITINIB
     Indication: PRODUCT USED FOR UNKNOWN INDICATION
     Dosage: 5 MILLIGRAM
     Route: 065
  2. FEDRATINIB [Suspect]
     Active Substance: FEDRATINIB
     Indication: MYELOFIBROSIS
     Dosage: 4 CAPSULE
     Route: 048
     Dates: start: 20200123

REACTIONS (1)
  - Death [Fatal]

NARRATIVE: CASE EVENT DATE: 20200522
